FAERS Safety Report 16022056 (Version 2)
Quarter: 2019Q2

REPORT INFORMATION
  Report Type: Spontaneous
  Country: US (occurrence: US)
  Receive Date: 20190301
  Receipt Date: 20190409
  Transmission Date: 20190711
  Serious: No
  Sender: FDA-Public Use
  Company Number: US-ASTRAZENECA-2019SE21899

PATIENT
  Age: 18572 Day
  Sex: Female

DRUGS (1)
  1. PULMICORT FLEXHALER [Suspect]
     Active Substance: BUDESONIDE
     Indication: ACUTE RESPIRATORY DISTRESS SYNDROME
     Route: 055
     Dates: start: 20190129

REACTIONS (4)
  - Product use in unapproved indication [Unknown]
  - Off label use [Unknown]
  - Anxiety [Unknown]
  - Device failure [Unknown]

NARRATIVE: CASE EVENT DATE: 20190129
